FAERS Safety Report 7535938-X (Version None)
Quarter: 2011Q2

REPORT INFORMATION
  Report Type: 
  Country: None (occurrence: None)
  Receive Date: 20110607
  Receipt Date: 20110607
  Transmission Date: 20111010
  Serious: No
  Sender: FDA-Public Use
  Company Number: None

PATIENT
  Age: 61 Year
  Sex: Male
  Weight: 72.5755 kg

DRUGS (1)
  1. AVELOX [Suspect]
     Indication: PNEUMONIA
     Dosage: 7 PILLS ONE PER DAY PO
     Route: 048
     Dates: start: 20110404, end: 20110410

REACTIONS (11)
  - TREMOR [None]
  - DYSPNOEA [None]
  - MENTAL IMPAIRMENT [None]
  - IMPAIRED WORK ABILITY [None]
  - FATIGUE [None]
  - HOSTILITY [None]
  - MEMORY IMPAIRMENT [None]
  - ANXIETY [None]
  - FEELING COLD [None]
  - DYSPHEMIA [None]
  - ANGER [None]
